FAERS Safety Report 23176444 (Version 1)
Quarter: 2023Q4

REPORT INFORMATION
  Report Type: Spontaneous
  Country: US (occurrence: US)
  Receive Date: 20231113
  Receipt Date: 20231113
  Transmission Date: 20240110
  Serious: Yes (Other)
  Sender: FDA-Public Use
  Company Number: US-SA-2023SA334602

PATIENT
  Age: 7 Year
  Sex: Male
  Weight: 37 kg

DRUGS (5)
  1. DOXYLAMINE SUCCINATE [Suspect]
     Active Substance: DOXYLAMINE SUCCINATE
     Indication: Oropharyngeal pain
     Dosage: UNK
     Route: 065
  2. DEXTROMETHORPHAN [Suspect]
     Active Substance: DEXTROMETHORPHAN
     Indication: Oropharyngeal pain
     Dosage: UNK
     Route: 065
  3. DIPHENHYDRAMINE [Concomitant]
     Active Substance: DIPHENHYDRAMINE
     Indication: Anaphylactic reaction
     Dosage: 37 MG
     Route: 042
  4. DEXAMETHASONE [Concomitant]
     Active Substance: DEXAMETHASONE
     Indication: Anaphylactic reaction
     Dosage: 12 MG
     Route: 065
  5. EPINEPHRINE [Concomitant]
     Active Substance: EPINEPHRINE
     Indication: Anaphylactic reaction
     Dosage: 0.3 MG
     Route: 065

REACTIONS (12)
  - Hallucination [Unknown]
  - Generalised tonic-clonic seizure [Recovering/Resolving]
  - Delirium [Recovered/Resolved]
  - Toxicity to various agents [Recovered/Resolved]
  - Dyspnoea [Unknown]
  - Aggression [Unknown]
  - Incoherent [Unknown]
  - Agitation [Recovering/Resolving]
  - Speech disorder [Unknown]
  - Restlessness [Unknown]
  - Somnolence [Unknown]
  - Tachycardia [Unknown]
